FAERS Safety Report 11300704 (Version 1)
Quarter: 2015Q3

REPORT INFORMATION
  Report Type: Spontaneous
  Country: US (occurrence: US)
  Receive Date: 20150722
  Receipt Date: 20150722
  Transmission Date: 20151125
  Serious: No
  Sender: FDA-Public Use
  Company Number: US-ELI_LILLY_AND_COMPANY-US201210007938

PATIENT
  Sex: Female

DRUGS (1)
  1. HUMATROPE [Suspect]
     Active Substance: SOMATROPIN
     Indication: BLOOD GROWTH HORMONE DECREASED
     Dosage: UNK, UNKNOWN
     Route: 065

REACTIONS (5)
  - Medication error [Unknown]
  - Weight increased [Unknown]
  - Drug interaction [Unknown]
  - Investigation abnormal [Unknown]
  - Abdominal distension [Unknown]
